FAERS Safety Report 20864880 (Version 1)
Quarter: 2022Q2

REPORT INFORMATION
  Report Type: Spontaneous
  Country: US (occurrence: US)
  Receive Date: 20220524
  Receipt Date: 20220524
  Transmission Date: 20220721
  Serious: No
  Sender: FDA-Public Use
  Company Number: US-ORGANON-O2205USA000188

PATIENT
  Age: 28 Year
  Sex: Female
  Weight: 71.202 kg

DRUGS (1)
  1. NEXPLANON [Suspect]
     Active Substance: ETONOGESTREL
     Dosage: 1 ROD (68 MG ONCE)

REACTIONS (4)
  - Complication of device insertion [Recovered/Resolved]
  - Wrong technique in product usage process [Unknown]
  - Device breakage [Unknown]
  - No adverse event [Unknown]
